FAERS Safety Report 15075511 (Version 1)
Quarter: 2018Q2

REPORT INFORMATION
  Report Type: Report from Study
  Country: US (occurrence: US)
  Receive Date: 20180627
  Receipt Date: 20180627
  Transmission Date: 20180711
  Serious: No
  Sender: FDA-Public Use
  Company Number: US-SAOL THERAPEUTICS-2018SAO00780

PATIENT
  Sex: Female

DRUGS (12)
  1. BUPIVACAINE. [Suspect]
     Active Substance: BUPIVACAINE
     Dosage: 13.859 MG, \DAY
     Route: 037
     Dates: start: 20180330, end: 20180404
  2. HYDROMORPHONE [Suspect]
     Active Substance: HYDROMORPHONE
     Dosage: 1.4982 MG, \DAY
     Dates: start: 20180404
  3. COMPOUNDED BACLOFEN [Suspect]
     Active Substance: BACLOFEN
     Dosage: 74.91 ?G, \DAY
     Route: 037
     Dates: start: 20180404
  4. BUPIVACAINE. [Suspect]
     Active Substance: BUPIVACAINE
     Dosage: 11.237 MG, \DAY
     Route: 037
     Dates: start: 20180404
  5. HYDROMORPHONE [Suspect]
     Active Substance: HYDROMORPHONE
     Dosage: 1.8478 MG, \DAY
     Route: 037
     Dates: start: 20180330, end: 20180404
  6. HYDROMORPHONE [Suspect]
     Active Substance: HYDROMORPHONE
     Dosage: 2.2007 MG, \DAY - MAX
     Dates: start: 20180330, end: 20180404
  7. HYDROMORPHONE [Suspect]
     Active Substance: HYDROMORPHONE
     Dosage: 2.0815 MG, \DAY- MAX
     Dates: start: 20180404
  8. BUPIVACAINE. [Suspect]
     Active Substance: BUPIVACAINE
     Dosage: 16.05 MG, \DAY - MAX
     Dates: start: 20180330, end: 20180404
  9. BUPIVACAINE. [Suspect]
     Active Substance: BUPIVACAINE
     Dosage: 15.611 MG, \DAY
     Dates: start: 20180404
  10. COMPOUNDED BACLOFEN [Suspect]
     Active Substance: BACLOFEN
     Dosage: 92.39 ?G, \DAY
     Route: 037
     Dates: start: 20180330, end: 20180404
  11. COMPOUNDED BACLOFEN [Suspect]
     Active Substance: BACLOFEN
     Dosage: 110.03 ?G, \DAY - MAX
     Dates: start: 20180330, end: 20180404
  12. COMPOUNDED BACLOFEN [Suspect]
     Active Substance: BACLOFEN
     Dosage: 104.07 ?G, \DAY - MAX
     Dates: start: 20180404

REACTIONS (4)
  - Pain [Recovered/Resolved]
  - Hypoaesthesia [Not Recovered/Not Resolved]
  - Paraesthesia [Not Recovered/Not Resolved]
  - Device issue [Unknown]

NARRATIVE: CASE EVENT DATE: 20180404
